FAERS Safety Report 4388895-1 (Version None)
Quarter: 2004Q2

REPORT INFORMATION
  Report Type: 
  Country: None (occurrence: None)
  Receive Date: 20040624
  Receipt Date: 20040608
  Transmission Date: 20050107
  Serious: Yes (Other)
  Sender: FDA-Public Use
  Company Number: 2004-DE-03303GL

PATIENT
  Age: 77 Year
  Sex: Female

DRUGS (3)
  1. TELMISARTAN (TELMISARTAN)(TA) [Suspect]
     Indication: HYPERTENSION
     Dosage: 80 MG PO
     Route: 048
     Dates: start: 20040426, end: 20040530
  2. PRITOR PLUS (MICARDIS HCT) (TA) (TELMISARTAN, HYDROCHLOROTHIAZIDE) [Suspect]
     Indication: HYPERTENSION
     Dosage: 80 MG PO
     Route: 048
     Dates: start: 20040601, end: 20040607
  3. PARACETAMOL (PARACETAMOL) [Concomitant]

REACTIONS (9)
  - ASTHENIA [None]
  - CREATININE RENAL CLEARANCE DECREASED [None]
  - DIZZINESS [None]
  - EOSINOPHILIA [None]
  - LEUKOCYTOSIS [None]
  - MYALGIA [None]
  - NEUTROPENIA [None]
  - PYREXIA [None]
  - VERTIGO [None]
